FAERS Safety Report 4352574-7 (Version None)
Quarter: 2004Q2

REPORT INFORMATION
  Report Type: 
  Country: None (occurrence: None)
  Receive Date: 20040427
  Receipt Date: 20040218
  Transmission Date: 20050107
  Serious: No
  Sender: FDA-Public Use
  Company Number: WAES 0402USA01432

PATIENT
  Age: 58 Year
  Sex: Female
  Weight: 71.6683 kg

DRUGS (10)
  1. EMEND [Suspect]
     Indication: PROPHYLACTIC CHEMOTHERAPY
     Dosage: 125MG/1X/PO
     Route: 048
     Dates: start: 20040204, end: 20040204
  2. ACTOS [Concomitant]
  3. ANZEMET [Concomitant]
  4. COZAAR [Concomitant]
  5. DECADRON [Concomitant]
  6. GLUCOPHAGE [Concomitant]
  7. ATENOLOL [Concomitant]
  8. CYCLOPHOSPHAMIDE (+) EPIRUBICIN [Concomitant]
  9. HYDROCHLOROTHIAZIDE [Concomitant]
  10. POTASSIUM CHLORIDE [Concomitant]

REACTIONS (2)
  - EYE SWELLING [None]
  - OEDEMA PERIPHERAL [None]
